FAERS Safety Report 17737108 (Version 2)
Quarter: 2020Q2

REPORT INFORMATION
  Report Type: Spontaneous
  Country: ES (occurrence: ES)
  Receive Date: 20200502
  Receipt Date: 20200616
  Transmission Date: 20200714
  Serious: Yes (Other)
  Sender: FDA-Public Use
  Company Number: ES-TEVA-2020-ES-1229118

PATIENT
  Age: 61 Year
  Sex: Male

DRUGS (6)
  1. HIDROXICLOROQUINA (2143A) [Suspect]
     Active Substance: HYDROXYCHLOROQUINE
     Indication: PNEUMONIA
     Dosage: 400 MILLIGRAM DAILY;
     Route: 048
     Dates: start: 20200326, end: 20200401
  2. HIDROXICLOROQUINA (2143A) [Interacting]
     Active Substance: HYDROXYCHLOROQUINE
     Indication: CORONAVIRUS INFECTION
  3. TOCILIZUMAB (8289A) [Interacting]
     Active Substance: TOCILIZUMAB
     Indication: PNEUMONIA
     Dosage: 600 MILLIGRAM DAILY; ? IN SINGLE DOSE
     Route: 042
     Dates: start: 20200329, end: 20200329
  4. TOCILIZUMAB (8289A) [Interacting]
     Active Substance: TOCILIZUMAB
     Indication: CORONAVIRUS INFECTION
  5. DEXAMETASONA (722A) [Concomitant]
     Active Substance: DEXAMETHASONE
     Indication: PNEUMONIA
     Route: 042
     Dates: start: 20200402, end: 20200411
  6. DEXAMETASONA (722A) [Concomitant]
     Active Substance: DEXAMETHASONE
     Indication: CORONAVIRUS INFECTION
     Dosage: 20MG / 24H THE FIRST 5 DAYS, THEN 10MG / 24H FOR 5 MORE DAYS.
     Route: 042
     Dates: start: 20200401, end: 20200405

REACTIONS (5)
  - Hypofibrinogenaemia [Recovered/Resolved]
  - Melaena [Recovered/Resolved]
  - Sepsis [Not Recovered/Not Resolved]
  - Drug interaction [Unknown]
  - Deep vein thrombosis [Not Recovered/Not Resolved]

NARRATIVE: CASE EVENT DATE: 20200329
